FAERS Safety Report 8521359-X (Version None)
Quarter: 2012Q3

REPORT INFORMATION
  Report Type: 
  Country: None (occurrence: None)
  Receive Date: 20120719
  Receipt Date: 20120629
  Transmission Date: 20120928
  Serious: Yes (Life-Threatening, Hospitalization, Other)
  Sender: FDA-Public Use
  Company Number: CA-SANOFI-AVENTIS-200821775GDDC

PATIENT
  Age: 76 Year
  Sex: Male

DRUGS (9)
  1. CARVEDILOL [Concomitant]
     Route: 048
     Dates: start: 20000401
  2. LOSARTAN POTASSIUM [Concomitant]
     Dates: start: 19970901
  3. OMEGA-3 POLYUNSATURATED FATTY ACID [Suspect]
     Dosage: DOSE AS USED: UNK
     Route: 048
  4. REPAGLINIDE [Suspect]
     Indication: DIABETES MELLITUS
     Dates: start: 20080801, end: 20081101
  5. LANTUS [Suspect]
     Indication: DIABETES MELLITUS
     Route: 058
     Dates: start: 20050714, end: 20081105
  6. FUROSEMIDE [Concomitant]
     Dates: start: 19951001
  7. ASPIRIN [Concomitant]
     Dates: start: 19930501
  8. SIMVASTATIN [Concomitant]
     Dates: start: 20000801
  9. OPTIPEN [Suspect]
     Indication: DIABETES MELLITUS
     Dates: start: 20050714, end: 20081105

REACTIONS (4)
  - SUBDURAL HAEMATOMA [None]
  - HYPOGLYCAEMIA [None]
  - ASTHENIA [None]
  - DIZZINESS [None]
